FAERS Safety Report 9110478 (Version 1)
Quarter: 2013Q1

REPORT INFORMATION
  Report Type: Spontaneous
  Country: EE (occurrence: EE)
  Receive Date: 20130223
  Receipt Date: 20130223
  Transmission Date: 20140127
  Serious: Yes (Disabling)
  Sender: FDA-Public Use
  Company Number: EE-009507513-1302EST006480

PATIENT
  Age: 53 Year
  Sex: Male

DRUGS (7)
  1. VIOXX [Suspect]
     Indication: ARTHRALGIA
     Dosage: 25 MG, QD, PATIENT TOOK 112 TABLETS IN ALL
     Route: 048
     Dates: start: 200204, end: 200402
  2. VIOXX [Suspect]
     Indication: FATIGUE
  3. ASPIRIN CARDIO [Concomitant]
     Dosage: 150 MG, QD
     Route: 048
  4. BETALOC [Concomitant]
     Dosage: 50 MG, QD
     Route: 048
  5. CARDACE (RAMIPRIL) [Concomitant]
     Dosage: 5 MG, QD
     Route: 048
  6. NORVASC [Concomitant]
     Dosage: 10 MG, QD
     Route: 048
  7. SIMVASTATIN [Concomitant]
     Dosage: 20 MG, QD
     Route: 048

REACTIONS (1)
  - Chest pain [Recovered/Resolved with Sequelae]
